FAERS Safety Report 10235169 (Version 1)
Quarter: 2014Q1

REPORT INFORMATION
  Report Type: Spontaneous
  Country: US (occurrence: None)
  Receive Date: 20140306
  Receipt Date: 20140306
  Transmission Date: 20141002
  Serious: Yes (Other)
  Sender: FDA-Public Use
  Company Number: 163-21880-13092920

PATIENT
  Age: 62 Year
  Sex: Female

DRUGS (13)
  1. REVLIMID (LENALIDOMIDE) (10 MILLIGRAM, CAPSULES) [Suspect]
     Indication: PLASMA CELL MYELOMA
     Dosage: 14 IN 21 D,
     Route: 048
     Dates: start: 20120921
  2. PEPCID(FAMOTIDINE)(UNKNOWN) [Concomitant]
  3. BACTRIM(BACTRIM)(UNKNOWN) [Concomitant]
  4. LOVENOX(HEPARIN-FRACTION, SODIUM SALT)(UNKNOWN) [Concomitant]
  5. DIAZEPAM(DIAZEPAM)(UNKNOWN) [Concomitant]
  6. ZOFRAN(ONDANSETRON HYDROCHLORIDE) (UNKNOWN) [Concomitant]
  7. HYDROMORPHONE(HYDROMORPHONE)(UNKNOWN) [Concomitant]
  8. JANTOVEN(WARFARIN SODIUM)(UNKNOWN) [Concomitant]
  9. CALCIUM(CALCIUM) (UNKNOWN) [Concomitant]
  10. MULTIVITAMINS(MULTIVITAMINS)(UNKNOWN) [Concomitant]
  11. ACYCLOVIR(ACICLOVIR)(UNKNOWN) [Concomitant]
  12. ASPIRINE(ACETYLSALICYLIC ACID)(UNKNOWN) [Concomitant]
  13. VELCADE(BORTEZOMIB)(UNKNOWN) [Concomitant]

REACTIONS (1)
  - Deep vein thrombosis [None]
